FAERS Safety Report 6875809-5 (Version None)
Quarter: 2010Q2

REPORT INFORMATION
  Report Type: 
  Country: None (occurrence: None)
  Receive Date: 20100616
  Receipt Date: 20100401
  Transmission Date: 20101027
  Serious: Yes (Other)
  Sender: FDA-Public Use
  Company Number: DSA_42878_2010

PATIENT
  Sex: Female

DRUGS (28)
  1. XENAZINE [Suspect]
     Indication: DYSTONIA
     Dosage: (25 MG TID ORAL)
     Route: 048
     Dates: start: 20091116, end: 20100301
  2. METRONIDAZOLE [Concomitant]
  3. DOXEPIN HCL [Concomitant]
  4. SINEMET [Concomitant]
  5. FLEXERIL [Concomitant]
  6. EFFEXOR [Concomitant]
  7. MYLANTA /00416501/ [Concomitant]
  8. TYLENOL (CAPLET) [Concomitant]
  9. ZOLPIDEM [Concomitant]
  10. DESMOPRESSIN ACETATE [Concomitant]
  11. FLOLAN [Concomitant]
  12. NASONEX [Concomitant]
  13. CLONAZEPAM [Concomitant]
  14. TIZANIDINE HCL [Concomitant]
  15. BETAMETHASONE [Concomitant]
  16. TERCONAZOLE [Concomitant]
  17. IMITREX /01044801/ [Concomitant]
  18. OXYBUTYNIN CHLORIDE [Concomitant]
  19. CETIRIZINE HCL [Concomitant]
  20. ALBUTEROL [Concomitant]
  21. CHLORPHENIRAMINE [Concomitant]
  22. NITROFURANTOIN [Concomitant]
  23. NYSTATIN [Concomitant]
  24. OMEPRAZOLE [Concomitant]
  25. PREDNISONE [Concomitant]
  26. BUPROPION [Concomitant]
  27. NAPROXEN [Concomitant]
  28. RANITIDINE [Concomitant]

REACTIONS (2)
  - DEPRESSION [None]
  - SUICIDAL IDEATION [None]
